FAERS Safety Report 24558928 (Version 1)
Quarter: 2024Q4

REPORT INFORMATION
  Report Type: Spontaneous
  Country: KR (occurrence: KR)
  Receive Date: 20241029
  Receipt Date: 20241029
  Transmission Date: 20250115
  Serious: Yes (Hospitalization, Other)
  Sender: BRISTOL-MYERS SQUIBB COMPANY
  Company Number: KR-BRISTOL-MYERS SQUIBB COMPANY-2024-167292

PATIENT
  Age: 56 Year
  Sex: Male
  Weight: 60.5 kg

DRUGS (15)
  1. ELIQUIS [Suspect]
     Active Substance: APIXABAN
     Indication: Atrial fibrillation
     Dates: start: 20200827
  2. EZETIMIBE [Suspect]
     Active Substance: EZETIMIBE
     Indication: Hyperlipidaemia
     Dates: start: 20200908
  3. ROSUVASTATIN CALCIUM [Suspect]
     Active Substance: ROSUVASTATIN CALCIUM
     Indication: Hyperlipidaemia
     Dates: start: 20200908
  4. FOLIC ACID [Concomitant]
     Active Substance: FOLIC ACID
     Indication: Iron deficiency anaemia
     Dates: start: 20201008
  5. METHYLCOBALAMIN [Concomitant]
     Active Substance: METHYLCOBALAMIN
     Indication: Chronic hepatitis B
     Dates: start: 20200402
  6. ENTECAVIR [Concomitant]
     Active Substance: ENTECAVIR
     Indication: Chronic hepatitis B
     Dates: start: 20110106
  7. CEFIXIME [Concomitant]
     Active Substance: CEFIXIME
     Indication: Pleurisy
     Dates: start: 20201004, end: 20201007
  8. ACETAMINOPHEN [Concomitant]
     Active Substance: ACETAMINOPHEN
     Indication: Pleurisy
     Dates: start: 20201004, end: 20201007
  9. FAMOTIDINE [Concomitant]
     Active Substance: FAMOTIDINE
     Indication: Pleurisy
     Dates: start: 20201004, end: 20201007
  10. METFORMIN HYDROCHLORIDE [Concomitant]
     Active Substance: METFORMIN HYDROCHLORIDE
     Indication: Diabetes mellitus
     Dates: start: 20191211
  11. CARVEDILOL [Concomitant]
     Active Substance: CARVEDILOL
     Indication: Myocardial infarction
     Dates: start: 20200824, end: 20201227
  12. CLOPIDOGREL BISULFATE [Concomitant]
     Active Substance: CLOPIDOGREL BISULFATE
     Indication: Myocardial infarction
     Dates: start: 20200826
  13. FERROUS SULFATE [Concomitant]
     Active Substance: FERROUS SULFATE
     Indication: Iron deficiency anaemia
     Dates: start: 20201008
  14. AMIODARONE HYDROCHLORIDE [Concomitant]
     Active Substance: AMIODARONE HYDROCHLORIDE
     Indication: Atrial fibrillation
     Dates: start: 20200825
  15. FUROSEMIDE [Concomitant]
     Active Substance: FUROSEMIDE
     Indication: Pulmonary oedema
     Dates: start: 20200824, end: 20201226

REACTIONS (1)
  - Ischaemic cardiomyopathy [Recovered/Resolved]

NARRATIVE: CASE EVENT DATE: 20201227
